FAERS Safety Report 8158029-6 (Version None)
Quarter: 2012Q1

REPORT INFORMATION
  Report Type: 
  Country: None (occurrence: None)
  Receive Date: 20120222
  Receipt Date: 20120214
  Transmission Date: 20120608
  Serious: Yes (Disabling, Other)
  Sender: FDA-Public Use
  Company Number: PHHY2012AT013313

PATIENT
  Sex: Female

DRUGS (2)
  1. ZOMETA [Suspect]
     Indication: METASTASES TO BONE
     Dates: start: 20090101
  2. XELODA [Concomitant]

REACTIONS (7)
  - OSTEONECROSIS OF JAW [None]
  - BACTERIAL INFECTION [None]
  - ERYTHEMA [None]
  - SWELLING [None]
  - EXPOSED BONE IN JAW [None]
  - PAIN IN JAW [None]
  - GINGIVAL INFECTION [None]
